FAERS Safety Report 19400230 (Version 1)
Quarter: 2021Q2

REPORT INFORMATION
  Report Type: Spontaneous
  Country: US (occurrence: US)
  Receive Date: 20210610
  Receipt Date: 20210610
  Transmission Date: 20210717
  Serious: Yes (Hospitalization, Other)
  Sender: FDA-Public Use
  Company Number: US-TEVA-2021-US-1920598

PATIENT
  Sex: Female

DRUGS (2)
  1. LEVALBUTEROL. [Suspect]
     Active Substance: LEVALBUTEROL
     Indication: ASTHMA
     Route: 065
  2. ALBUTEROL. [Suspect]
     Active Substance: ALBUTEROL
     Route: 065

REACTIONS (8)
  - Heart rate increased [Unknown]
  - Device issue [Unknown]
  - Choking [Unknown]
  - Dyspnoea [Unknown]
  - Product use complaint [Unknown]
  - Drug delivery system issue [Unknown]
  - Heart injury [Unknown]
  - Hyperhidrosis [Unknown]
